FAERS Safety Report 21277975 (Version 1)
Quarter: 2022Q3

REPORT INFORMATION
  Report Type: Spontaneous
  Country: US (occurrence: US)
  Receive Date: 20220831
  Receipt Date: 20220831
  Transmission Date: 20221027
  Serious: No
  Sender: FDA-Public Use
  Company Number: US-ABBVIE-22K-163-4262928-00

PATIENT
  Age: 35 Year
  Sex: Female
  Weight: 68.100 kg

DRUGS (11)
  1. HUMIRA [Suspect]
     Active Substance: ADALIMUMAB
     Indication: Psoriatic arthropathy
     Route: 058
     Dates: start: 20210817
  2. METHOTREXATE [Concomitant]
     Active Substance: METHOTREXATE
     Indication: Product used for unknown indication
     Dosage: HELPS THE HUMIRA
  3. FOLIC ACID [Concomitant]
     Active Substance: FOLIC ACID
     Indication: Product used for unknown indication
     Dosage: HELPS THE METHOTREXATE
  4. NORVASC [Concomitant]
     Active Substance: AMLODIPINE BESYLATE
     Indication: Raynaud^s phenomenon
  5. HAWTHORN BERRY [Concomitant]
     Indication: Psoriatic arthropathy
  6. VITAMIN D3 [Concomitant]
     Active Substance: CHOLECALCIFEROL
     Indication: Psoriatic arthropathy
  7. PAPAYA ENZYMES [Concomitant]
     Indication: Psoriatic arthropathy
  8. MAGNESIUM [Concomitant]
     Active Substance: MAGNESIUM
     Indication: Psoriatic arthropathy
  9. VITAMIN C [Concomitant]
     Active Substance: ASCORBIC ACID
     Indication: Psoriatic arthropathy
  10. HERBALS\TURMERIC [Concomitant]
     Active Substance: HERBALS\TURMERIC
     Indication: Psoriatic arthropathy
  11. VITAMIN B COMPLEX [Concomitant]
     Active Substance: CYANOCOBALAMIN\DEXPANTHENOL\NIACINAMIDE\PYRIDOXINE HYDROCHLORIDE\RIBOFLAVIN 5^-PHOSPHATE SODIUM\THIA
     Indication: Psoriatic arthropathy

REACTIONS (4)
  - Device issue [Unknown]
  - Incorrect dose administered [Unknown]
  - Injection site reaction [Not Recovered/Not Resolved]
  - Pain [Unknown]

NARRATIVE: CASE EVENT DATE: 20220201
